FAERS Safety Report 15590769 (Version 1)
Quarter: 2018Q4

REPORT INFORMATION
  Report Type: Spontaneous
  Country: DK (occurrence: DK)
  Receive Date: 20181106
  Receipt Date: 20181106
  Transmission Date: 20190205
  Serious: Yes (Disabling)
  Sender: FDA-Public Use
  Company Number: PHHY2018DK008298

PATIENT
  Age: 41 Year
  Sex: Female

DRUGS (5)
  1. MAXIDEX [Concomitant]
     Active Substance: DEXAMETHASONE
     Indication: OCULAR HYPERAEMIA
     Dosage: STYRKE: 1 MG/ML
     Route: 065
  2. TOBRADEX [Suspect]
     Active Substance: DEXAMETHASONE\TOBRAMYCIN
     Indication: OCULAR HYPERAEMIA
     Dosage: STYRKE: 1+3 MG/ML.
     Route: 065
  3. MAXIDEX [Concomitant]
     Active Substance: DEXAMETHASONE
     Dosage: STYRKE: 1 MG/ML. DOSIS: UKENDT.
     Route: 065
  4. TOBRADEX [Suspect]
     Active Substance: DEXAMETHASONE\TOBRAMYCIN
     Dosage: STYRKE: 1+3 MG/ML. DOSIS: UKENDT
     Route: 065
     Dates: start: 2008, end: 2010
  5. MAXIDEX [Concomitant]
     Active Substance: DEXAMETHASONE
     Indication: EYE ALLERGY
     Dosage: STYRKE: 1 MG/ML. DOSIS: 3 GANGE DAGLIG I HVERT ?JE I 14 DAGE
     Route: 065

REACTIONS (4)
  - Glaucoma [Not Recovered/Not Resolved]
  - Ocular hypertension [Recovered/Resolved]
  - Tunnel vision [Not Recovered/Not Resolved]
  - Visual field defect [Not Recovered/Not Resolved]

NARRATIVE: CASE EVENT DATE: 2010
